FAERS Safety Report 17685429 (Version 1)
Quarter: 2020Q2

REPORT INFORMATION
  Report Type: Spontaneous
  Country: US (occurrence: US)
  Receive Date: 20200420
  Receipt Date: 20200420
  Transmission Date: 20200714
  Serious: No
  Sender: FDA-Public Use
  Company Number: US-SA-2020SA098183

PATIENT
  Age: 76 Year
  Sex: Male

DRUGS (16)
  1. OXYGEN. [Concomitant]
     Active Substance: OXYGEN
  2. CARDURA [Concomitant]
     Active Substance: DOXAZOSIN MESYLATE
     Indication: PNEUMONIA
  3. CARDURA [Concomitant]
     Active Substance: DOXAZOSIN MESYLATE
     Indication: LUNG DISORDER
  4. DOPAMINE [Concomitant]
     Active Substance: DOPAMINE HYDROCHLORIDE
     Indication: CORONAVIRUS INFECTION
     Dosage: UNK
     Dates: start: 20200409
  5. CARDURA [Concomitant]
     Active Substance: DOXAZOSIN MESYLATE
     Indication: CORONAVIRUS INFECTION
     Dosage: 8 MG, QD
     Dates: start: 20200409
  6. AZITHROMYCIN ANHYDROUS. [Concomitant]
     Active Substance: AZITHROMYCIN ANHYDROUS
     Indication: PNEUMONIA
  7. KEVZARA [Suspect]
     Active Substance: SARILUMAB
     Indication: PRODUCT USE IN UNAPPROVED INDICATION
     Dosage: 400 MG, TOTAL
     Route: 040
     Dates: start: 20200413, end: 20200413
  8. LOSARTAN. [Concomitant]
     Active Substance: LOSARTAN
     Dosage: 500 MG, QD
  9. HYDROXYCHLOROQUINE [Concomitant]
     Active Substance: HYDROXYCHLOROQUINE
     Indication: CORONAVIRUS INFECTION
     Dosage: UNK
     Dates: start: 20200409
  10. HYDROXYCHLOROQUINE [Concomitant]
     Active Substance: HYDROXYCHLOROQUINE
     Indication: PNEUMONIA
  11. AZITHROMYCIN ANHYDROUS. [Concomitant]
     Active Substance: AZITHROMYCIN ANHYDROUS
     Indication: LUNG DISORDER
  12. DOPAMINE [Concomitant]
     Active Substance: DOPAMINE HYDROCHLORIDE
     Indication: PNEUMONIA
  13. HYDROXYCHLOROQUINE [Concomitant]
     Active Substance: HYDROXYCHLOROQUINE
     Indication: LUNG DISORDER
  14. AZITHROMYCIN ANHYDROUS. [Concomitant]
     Active Substance: AZITHROMYCIN ANHYDROUS
     Indication: CORONAVIRUS INFECTION
     Dosage: 500 MG, Q12H
     Route: 042
     Dates: start: 20200409
  15. KEVZARA [Suspect]
     Active Substance: SARILUMAB
     Indication: CORONAVIRUS INFECTION
     Dosage: 400 MG, TOTAL
     Route: 040
     Dates: start: 20200411
  16. DOPAMINE [Concomitant]
     Active Substance: DOPAMINE HYDROCHLORIDE
     Indication: LUNG DISORDER

REACTIONS (1)
  - Off label use [Unknown]
